FAERS Safety Report 7909230-5 (Version None)
Quarter: 2011Q4

REPORT INFORMATION
  Report Type: 
  Country: None (occurrence: None)
  Receive Date: 20111111
  Receipt Date: 20110921
  Transmission Date: 20120403
  Serious: Yes (Death, Hospitalization)
  Sender: FDA-Public Use
  Company Number: US-ELI_LILLY_AND_COMPANY-US201002005927

PATIENT
  Sex: Male
  Weight: 73.469 kg

DRUGS (14)
  1. PEMETREXED [Suspect]
     Indication: NON-SMALL CELL LUNG CANCER
     Dosage: 500 MG/M2, OTHER
     Route: 042
     Dates: start: 20080701
  2. PREDNISONE TAB [Concomitant]
     Indication: LUNG DISORDER
  3. VITAMIN D [Concomitant]
  4. DOCUSATE [Concomitant]
  5. FISH OIL [Concomitant]
  6. SIMVASTATIN [Concomitant]
     Dosage: 0.5 UNK, DAILY (1/D)
  7. TYLENOL                                 /SCH/ [Concomitant]
  8. LOVENOX [Concomitant]
     Indication: THROMBOSIS
  9. INSULIN [Concomitant]
     Indication: DIABETES MELLITUS
  10. MULTI-VITAMIN [Concomitant]
  11. LORTAB [Concomitant]
  12. ATENOLOL [Concomitant]
     Indication: HEART RATE
  13. LOPID [Concomitant]
     Dosage: 300 MG, 2/D
  14. SYNTHROID [Concomitant]
     Indication: HYPOTHYROIDISM

REACTIONS (2)
  - MULTI-ORGAN FAILURE [None]
  - DISEASE PROGRESSION [None]
